FAERS Safety Report 11196341 (Version 2)
Quarter: 2015Q3

REPORT INFORMATION
  Report Type: Report from Study
  Country: DE (occurrence: DE)
  Receive Date: 20150617
  Receipt Date: 20150701
  Transmission Date: 20151125
  Serious: Yes (Death)
  Sender: FDA-Public Use
  Company Number: DE-BEH-2015051859

PATIENT
  Age: 86 Year
  Sex: Male
  Weight: 85 kg

DRUGS (10)
  1. PRIVIGEN [Suspect]
     Active Substance: HUMAN IMMUNOGLOBULIN G
     Indication: RICHTER^S SYNDROME
     Dosage: INFUSION RATE MIN. 0.7 - MAX. 0.8 ML/MIN
     Route: 042
     Dates: start: 20130610, end: 20150407
  2. THEOPHYLLINE [Concomitant]
     Active Substance: THEOPHYLLINE ANHYDROUS
  3. PRIVIGEN [Suspect]
     Active Substance: HUMAN IMMUNOGLOBULIN G
     Indication: SECONDARY IMMUNODEFICIENCY
     Dosage: INFUSION RATE MIN. 0.7 - MAX. 0.8 ML/MIN
     Route: 042
     Dates: start: 20130610, end: 20150407
  4. PRIVIGEN [Suspect]
     Active Substance: HUMAN IMMUNOGLOBULIN G
     Indication: CHRONIC LYMPHOCYTIC LEUKAEMIA
     Dosage: INFUSION RATE MIN. 0.7 - MAX. 0.8 ML/MIN
     Route: 042
     Dates: start: 20150408, end: 20150408
  5. CLEXANE [Concomitant]
     Active Substance: ENOXAPARIN SODIUM
  6. PRIVIGEN [Suspect]
     Active Substance: HUMAN IMMUNOGLOBULIN G
     Indication: INFECTION
     Dates: start: 20130610, end: 20150407
  7. PREDNISOLONE. [Concomitant]
     Active Substance: PREDNISOLONE
  8. SPIRIVA [Concomitant]
     Active Substance: TIOTROPIUM BROMIDE MONOHYDRATE
  9. PRIVIGEN [Suspect]
     Active Substance: HUMAN IMMUNOGLOBULIN G
     Indication: CHRONIC LYMPHOCYTIC LEUKAEMIA
     Dosage: INFUSION RATE MIN. 0.7 - MAX. 0.8 ML/MIN
     Route: 042
     Dates: start: 20130610, end: 20150407
  10. PRIVIGEN [Suspect]
     Active Substance: HUMAN IMMUNOGLOBULIN G
     Indication: INFECTION
     Dosage: INFUSION RATE MIN. 0.7 - MAX. 0.8 ML/MIN
     Route: 042
     Dates: start: 20130610, end: 20150407

REACTIONS (5)
  - Chronic lymphocytic leukaemia [Fatal]
  - Pneumonia [Recovered/Resolved]
  - Bronchial carcinoma [Fatal]
  - Febrile infection [Fatal]
  - Respiratory failure [Fatal]

NARRATIVE: CASE EVENT DATE: 20150326
